FAERS Safety Report 7103234-0 (Version None)
Quarter: 2010Q4

REPORT INFORMATION
  Report Type: 
  Country: None (occurrence: None)
  Receive Date: 20101115
  Receipt Date: 20100111
  Transmission Date: 20110411
  Serious: No
  Sender: FDA-Public Use
  Company Number: US-KINGPHARMUSA00001-K201000025

PATIENT
  Sex: Female

DRUGS (2)
  1. LEVOXYL [Suspect]
     Indication: HIGH FREQUENCY ABLATION
     Dosage: 200 MCG, UNK
  2. LEVOXYL [Suspect]
     Dosage: 200 MCG, QD

REACTIONS (13)
  - ALOPECIA [None]
  - ARTHRALGIA [None]
  - CONSTIPATION [None]
  - DISTURBANCE IN ATTENTION [None]
  - DRUG INEFFECTIVE [None]
  - DYSMENORRHOEA [None]
  - HEART RATE DECREASED [None]
  - INCREASED TENDENCY TO BRUISE [None]
  - MENSTRUATION IRREGULAR [None]
  - MUSCULAR WEAKNESS [None]
  - MYALGIA [None]
  - TEMPERATURE INTOLERANCE [None]
  - WEIGHT INCREASED [None]
